FAERS Safety Report 13462968 (Version 1)
Quarter: 2017Q2

REPORT INFORMATION
  Report Type: Spontaneous
  Country: AT (occurrence: AT)
  Receive Date: 20170420
  Receipt Date: 20170420
  Transmission Date: 20170830
  Serious: Yes (Hospitalization, Other)
  Sender: FDA-Public Use
  Company Number: AT-JNJFOC-20170413068

PATIENT
  Age: 7 Decade
  Sex: Male

DRUGS (1)
  1. DARZALEX [Suspect]
     Active Substance: DARATUMUMAB
     Indication: PLASMA CELL MYELOMA

REACTIONS (4)
  - Platelet count decreased [Unknown]
  - Red blood cell count decreased [Unknown]
  - Haemorrhage [Unknown]
  - Haematochezia [Unknown]
